FAERS Safety Report 8973175 (Version 5)
Quarter: 2017Q3

REPORT INFORMATION
  Report Type: Spontaneous
  Country: US (occurrence: US)
  Receive Date: 20121219
  Receipt Date: 20170823
  Transmission Date: 20171128
  Serious: Yes (Hospitalization, Other)
  Sender: FDA-Public Use
  Company Number: US-009507513-1212USA006870

PATIENT
  Sex: Female

DRUGS (4)
  1. FOSAMAX [Suspect]
     Active Substance: ALENDRONATE SODIUM
     Indication: OSTEOPOROSIS PROPHYLAXIS
     Dosage: UNK
     Route: 048
     Dates: start: 1999
  2. FOSAMAX [Suspect]
     Active Substance: ALENDRONATE SODIUM
     Indication: OSTEOPOROSIS PROPHYLAXIS
     Dosage: 70 MG, UNK
     Route: 048
     Dates: end: 20061228
  3. FOSAMAX PLUS D [Suspect]
     Active Substance: ALENDRONATE SODIUM\CHOLECALCIFEROL
     Indication: OSTEOPOROSIS PROPHYLAXIS
     Dosage: 70/2800 MG UNIT TABLET, 1 TABLET WEEKLY
     Route: 048
     Dates: start: 20061228
  4. ALENDRONATE SODIUM. [Suspect]
     Active Substance: ALENDRONATE SODIUM
     Indication: OSTEOPOROSIS PROPHYLAXIS
     Dosage: UNK
     Route: 048

REACTIONS (11)
  - Femur fracture [Unknown]
  - Essential hypertension [Unknown]
  - Breast cancer [Unknown]
  - Vertigo [Unknown]
  - Hyperlipidaemia [Unknown]
  - Bone disorder [Unknown]
  - Femur fracture [Unknown]
  - Thrombosis [Unknown]
  - Femur fracture [Recovering/Resolving]
  - Hypothyroidism [Unknown]
  - Bundle branch block right [Unknown]

NARRATIVE: CASE EVENT DATE: 1997
